FAERS Safety Report 9502046 (Version 1)
Quarter: 2013Q3

REPORT INFORMATION
  Report Type: Spontaneous
  Country: US (occurrence: US)
  Receive Date: 20130905
  Receipt Date: 20130905
  Transmission Date: 20140515
  Serious: No
  Sender: FDA-Public Use
  Company Number: US-009507513-1309USA000905

PATIENT
  Age: 72 Year
  Sex: Female

DRUGS (4)
  1. FOSAMAX [Suspect]
     Indication: OSTEOPOROSIS
     Dosage: 70 MG, QW
     Route: 048
     Dates: start: 2002, end: 201306
  2. ATENOLOL [Concomitant]
  3. LIPITOR [Concomitant]
  4. ZANTAC [Concomitant]
     Dosage: AS NEEDED

REACTIONS (6)
  - Dysphagia [Recovering/Resolving]
  - Oropharyngeal discomfort [Recovering/Resolving]
  - Gastritis [Recovering/Resolving]
  - Polyp [Recovering/Resolving]
  - Hiatus hernia [Recovering/Resolving]
  - Gastrointestinal disorder [Recovering/Resolving]
